FAERS Safety Report 4498131-3 (Version None)
Quarter: 2004Q3

REPORT INFORMATION
  Report Type: 
  Country: None (occurrence: None)
  Receive Date: 20040927
  Receipt Date: 20040603
  Transmission Date: 20050211
  Serious: No
  Sender: FDA-Public Use
  Company Number: USA040669222

PATIENT
  Age: 8 Year
  Sex: Female
  Weight: 23 kg

DRUGS (3)
  1. STRATTERA [Suspect]
     Indication: ATTENTION DEFICIT/HYPERACTIVITY DISORDER
     Dosage: 40 MG/1 DAY
     Dates: start: 20040429
  2. ZYRTEC [Concomitant]
  3. NASONEX [Concomitant]

REACTIONS (1)
  - RETCHING [None]
